FAERS Safety Report 9247836 (Version 1)
Quarter: 2013Q2

REPORT INFORMATION
  Report Type: Spontaneous
  Country: US (occurrence: None)
  Receive Date: 20130422
  Receipt Date: 20130422
  Transmission Date: 20140414
  Serious: Yes (Death)
  Sender: FDA-Public Use
  Company Number: None

PATIENT
  Age: 77 Year
  Sex: Male

DRUGS (2)
  1. AVASTIN [Suspect]
     Indication: DIABETIC RETINAL OEDEMA
     Dosage: 1 EVERY SIX WEEKS INTRAOCULAR
     Dates: start: 20110412, end: 20121012
  2. LUCENTIS [Suspect]
     Indication: DIABETIC RETINAL OEDEMA
     Dosage: 1 EVERY FOUR WEEKS INTRAOCULAR
     Dates: start: 20121107, end: 20130402

REACTIONS (1)
  - Death [None]
